FAERS Safety Report 5238273-8 (Version None)
Quarter: 2007Q1

REPORT INFORMATION
  Report Type: 
  Country: None (occurrence: None)
  Receive Date: 20070209
  Receipt Date: 20070209
  Transmission Date: 20070707
  Serious: Yes (Other)
  Sender: FDA-Public Use
  Company Number: None

PATIENT
  Age: 22 Year
  Sex: Female
  Weight: 72.5755 kg

DRUGS (2)
  1. MIRENA [Suspect]
     Indication: CONTRACEPTION
     Dosage: 1 5 YEARS INTRA-UTERI
     Route: 015
     Dates: start: 20051007, end: 20070212
  2. ZOLOFT SSRI [Concomitant]

REACTIONS (6)
  - ANXIETY [None]
  - DEPRESSION [None]
  - ILL-DEFINED DISORDER [None]
  - INSOMNIA [None]
  - LIBIDO DECREASED [None]
  - SUICIDAL IDEATION [None]
